FAERS Safety Report 20943225 (Version 3)
Quarter: 2022Q3

REPORT INFORMATION
  Report Type: Other
  Country: CA (occurrence: None)
  Receive Date: 20220610
  Receipt Date: 20220905
  Transmission Date: 20221026
  Serious: Yes (Hospitalization, Other)
  Sender: FDA-Public Use
  Company Number: CA-ROCHE-3112666

PATIENT
  Sex: Male

DRUGS (10)
  1. OCREVUS [Suspect]
     Active Substance: OCRELIZUMAB
     Indication: Primary progressive multiple sclerosis
     Dosage: 300 MG AT DAY 0 AND 14, THEN 600 MG EVERY 6 MONTH
     Route: 042
     Dates: start: 20201209
  2. BACLOFEN [Suspect]
     Active Substance: BACLOFEN
     Indication: Product used for unknown indication
     Route: 065
  3. TIZANIDINE [Suspect]
     Active Substance: TIZANIDINE
     Indication: Product used for unknown indication
     Route: 065
  4. TAMSULOSIN [Concomitant]
     Active Substance: TAMSULOSIN
  5. DULOXETINE [Concomitant]
     Active Substance: DULOXETINE
  6. PANTOPRAZOLE [Concomitant]
     Active Substance: PANTOPRAZOLE
  7. SENNAE [Concomitant]
  8. EMOLAX (CANADA) [Concomitant]
  9. QUETIAPINE [Concomitant]
     Active Substance: QUETIAPINE
  10. TOVIAZ [Concomitant]
     Active Substance: FESOTERODINE FUMARATE

REACTIONS (13)
  - Prostatic disorder [Not Recovered/Not Resolved]
  - Spinal osteoarthritis [Unknown]
  - Urinary tract infection [Unknown]
  - Insomnia [Unknown]
  - Fatigue [Unknown]
  - Nightmare [Unknown]
  - Hallucination [Unknown]
  - Decreased appetite [Unknown]
  - Drug ineffective [Unknown]
  - Depression [Unknown]
  - Vascular rupture [Unknown]
  - Poor venous access [Unknown]
  - Gastrointestinal disorder [Unknown]
